FAERS Safety Report 13239097 (Version 2)
Quarter: 2017Q1

REPORT INFORMATION
  Report Type: Report from Study
  Country: US (occurrence: US)
  Receive Date: 20170216
  Receipt Date: 20170302
  Transmission Date: 20170428
  Serious: Yes (Other)
  Sender: FDA-Public Use
  Company Number: US-PFIZER INC-2016536807

PATIENT
  Age: 49 Year
  Sex: Male

DRUGS (3)
  1. GEMZAR [Concomitant]
     Active Substance: GEMCITABINE HYDROCHLORIDE
     Dosage: UNK
     Dates: start: 20170104
  2. SUTENT [Suspect]
     Active Substance: SUNITINIB MALATE
     Dosage: 50 MG, CYCLIC (DAILY FOR DAY 1-DAY 14 FOLLOWED BY 7 DAYS OFF, TO COMPLETE A 21 DAY CYCLE)
     Route: 048
     Dates: start: 20161222
  3. SUTENT [Suspect]
     Active Substance: SUNITINIB MALATE
     Indication: RENAL CELL CARCINOMA
     Dosage: 50 MG, CYCLIC (DAILY FOR DAY 1-DAY 28 FOLLOWED BY 14 DAYS OFF, TO COMPLETE A 42 DAY CYCLE)
     Route: 048
     Dates: start: 20161104, end: 20161221

REACTIONS (15)
  - Blister [Unknown]
  - Swelling face [Unknown]
  - Nausea [Not Recovered/Not Resolved]
  - Constipation [Unknown]
  - Anaemia [Unknown]
  - Dysgeusia [Recovering/Resolving]
  - Insomnia [Unknown]
  - Erythema [Unknown]
  - Fatigue [Recovering/Resolving]
  - Irritability [Unknown]
  - Ageusia [Unknown]
  - Hot flush [Recovering/Resolving]
  - Night sweats [Recovering/Resolving]
  - Stomatitis [Recovering/Resolving]
  - Pruritus [Unknown]
